FAERS Safety Report 6582093-9 (Version None)
Quarter: 2010Q1

REPORT INFORMATION
  Report Type: 
  Country: None (occurrence: None)
  Receive Date: 20100216
  Receipt Date: 20100209
  Transmission Date: 20100710
  Serious: Yes (Hospitalization)
  Sender: FDA-Public Use
  Company Number: US-BIOGENIDEC-2009BI032485

PATIENT
  Age: 64 Year
  Sex: Female

DRUGS (2)
  1. AVONEX [Suspect]
     Indication: MULTIPLE SCLEROSIS
     Route: 030
     Dates: start: 19960101, end: 20000101
  2. AVONEX [Suspect]
     Route: 030
     Dates: start: 20020101, end: 20081229

REACTIONS (10)
  - DIPLOPIA [None]
  - IMMUNODEFICIENCY [None]
  - INFECTION [None]
  - MULTIPLE SCLEROSIS RELAPSE [None]
  - PAIN [None]
  - PNEUMONIA [None]
  - SCAR [None]
  - URINARY INCONTINENCE [None]
  - URINARY TRACT INFECTION [None]
  - WHITE BLOOD CELL COUNT DECREASED [None]
